FAERS Safety Report 8791257 (Version 1)
Quarter: 2012Q4

REPORT INFORMATION
  Report Type: Spontaneous
  Country: IT (occurrence: None)
  Receive Date: 20120911
  Receipt Date: 20120911
  Transmission Date: 20130627
  Serious: Yes (Other)
  Sender: FDA-Public Use
  Company Number: 2012P1053043

PATIENT
  Age: 13 Year
  Sex: Female

DRUGS (1)
  1. PHENOBARBITAL [Suspect]

REACTIONS (1)
  - Hepatic neoplasm [None]
